FAERS Safety Report 7383504-1 (Version None)
Quarter: 2011Q1

REPORT INFORMATION
  Report Type: 
  Country: None (occurrence: None)
  Receive Date: 20110330
  Receipt Date: 20110322
  Transmission Date: 20110831
  Serious: Yes (Hospitalization)
  Sender: FDA-Public Use
  Company Number: US-JNJFOC-20110309924

PATIENT
  Sex: Male

DRUGS (4)
  1. LEVAQUIN [Suspect]
     Indication: OSTEOMYELITIS
     Route: 048
  2. LEVAQUIN [Suspect]
     Indication: SOFT TISSUE INFECTION
     Route: 048
  3. LEVAQUIN [Suspect]
     Indication: ANTIBIOTIC THERAPY
     Route: 048
  4. HYDROCODONE BITARTRATE [Concomitant]
     Indication: ILL-DEFINED DISORDER
     Route: 065

REACTIONS (4)
  - STEVENS-JOHNSON SYNDROME [None]
  - NEOPLASM [None]
  - TENDON PAIN [None]
  - DEPRESSION [None]
